FAERS Safety Report 7592458-4 (Version None)
Quarter: 2011Q2

REPORT INFORMATION
  Report Type: 
  Country: None (occurrence: None)
  Receive Date: 20110609
  Receipt Date: 20110214
  Transmission Date: 20111010
  Serious: No
  Sender: FDA-Public Use
  Company Number: TH-2011-00009

PATIENT
  Age: 50 Year
  Sex: Male

DRUGS (3)
  1. HIV MEDICATIONS [Concomitant]
  2. TESTOSTERONE [Concomitant]
  3. EGRIFTA [Suspect]
     Indication: LIPODYSTROPHY ACQUIRED
     Dosage: 1 IN 1 D
     Dates: start: 20110128

REACTIONS (1)
  - SWELLING FACE [None]
